FAERS Safety Report 19072656 (Version 1)
Quarter: 2021Q1

REPORT INFORMATION
  Report Type: Report from Study
  Country: None (occurrence: PR)
  Receive Date: 20210330
  Receipt Date: 20210330
  Transmission Date: 20210420
  Serious: Yes (Disabling, Other)
  Sender: FDA-Public Use
  Company Number: PR-ABBVIE-21K-131-3786719-00

PATIENT
  Age: 78 Year
  Sex: Female
  Weight: 122.58 kg

DRUGS (1)
  1. HUMIRA [Suspect]
     Active Substance: ADALIMUMAB
     Indication: RHEUMATOID ARTHRITIS
     Dosage: 40MG/0.4ML
     Route: 058
     Dates: start: 20191115

REACTIONS (2)
  - Appendicitis [Recovering/Resolving]
  - Bedridden [Not Recovered/Not Resolved]

NARRATIVE: CASE EVENT DATE: 20210206
